FAERS Safety Report 4811219-X (Version None)
Quarter: 2005Q4

REPORT INFORMATION
  Report Type: 
  Country: None (occurrence: None)
  Receive Date: 20051027
  Receipt Date: 20030528
  Transmission Date: 20060501
  Serious: Yes (Death)
  Sender: FDA-Public Use
  Company Number: GB-SOLVAY-00205003404

PATIENT
  Age: 26903 Day
  Sex: Female
  Weight: 100 kg

DRUGS (10)
  1. FRUSEMIDE [Concomitant]
     Indication: ILL-DEFINED DISORDER
     Dosage: DAILY DOSE:  UNKNOWN
     Route: 065
     Dates: start: 20030121, end: 20030519
  2. PERINDOPRIL [Suspect]
     Indication: CARDIAC FAILURE CONGESTIVE
     Dosage: DAILY DOSE: 4 MILLIGRAM(S)
     Route: 048
     Dates: start: 20020731, end: 20030519
  3. DIAMICRON [Concomitant]
     Indication: ILL-DEFINED DISORDER
     Dosage: DAILY DOSE: 30 MILLIGRAM(S)
     Route: 048
     Dates: start: 20020731, end: 20030519
  4. SIMVASTATIN [Concomitant]
     Indication: ILL-DEFINED DISORDER
     Dosage: DAILY DOSE:  UNKNOWN
     Route: 048
     Dates: start: 20030215, end: 20030519
  5. ASPIRIN [Concomitant]
     Indication: ILL-DEFINED DISORDER
     Dosage: DAILY DOSE:  UNKNOWN
     Route: 065
     Dates: start: 20020731, end: 20030519
  6. GTN [Concomitant]
     Indication: ILL-DEFINED DISORDER
     Dosage: DAILY DOSE:  UNKNOWN
     Route: 065
     Dates: start: 20020731, end: 20030519
  7. FOLIC ACID [Concomitant]
     Indication: ILL-DEFINED DISORDER
     Dosage: DAILY DOSE:  UNKNOWN
     Route: 065
     Dates: start: 20020731, end: 20030519
  8. DOXEPIN HCL [Concomitant]
     Indication: ILL-DEFINED DISORDER
     Dosage: DAILY DOSE:  UNKNOWN
     Route: 065
     Dates: start: 20020731, end: 20030519
  9. GABAPENTIN [Concomitant]
     Indication: ILL-DEFINED DISORDER
     Dosage: DAILY DOSE:  UNKNOWN
     Route: 065
     Dates: start: 20020731, end: 20030519
  10. LACTULOSE [Concomitant]
     Indication: ILL-DEFINED DISORDER
     Dosage: DAILY DOSE:  UNKNOWN
     Route: 065
     Dates: start: 20020731, end: 20030519

REACTIONS (1)
  - MYOCARDIAL INFARCTION [None]
